FAERS Safety Report 4786196-0 (Version None)
Quarter: 2005Q4

REPORT INFORMATION
  Report Type: 
  Country: None (occurrence: None)
  Receive Date: 20051003
  Receipt Date: 20051003
  Transmission Date: 20060501
  Serious: Yes (Death, Hospitalization)
  Sender: FDA-Public Use
  Company Number: None

PATIENT
  Sex: Male
  Weight: 65 kg

DRUGS (8)
  1. SANDOSTATIN [Suspect]
     Indication: ANAL CANCER
     Dosage: SEE IMAGE
     Dates: start: 20050810, end: 20050810
  2. SANDOSTATIN [Suspect]
     Indication: NEOPLASM
     Dosage: SEE IMAGE
     Dates: start: 20050810, end: 20050810
  3. SANDOSTATIN [Suspect]
     Indication: RECTAL CANCER
     Dosage: SEE IMAGE
     Dates: start: 20050810, end: 20050810
  4. SANDOSTATIN [Suspect]
     Indication: ANAL CANCER
     Dosage: SEE IMAGE
     Dates: start: 20050815
  5. SANDOSTATIN [Suspect]
     Indication: NEOPLASM
     Dosage: SEE IMAGE
     Dates: start: 20050815
  6. SANDOSTATIN [Suspect]
     Indication: RECTAL CANCER
     Dosage: SEE IMAGE
     Dates: start: 20050815
  7. PLACEBO [Suspect]
     Dosage: SEE IMAGE
     Dates: start: 20050815
  8. ZOLOFT [Concomitant]

REACTIONS (1)
  - DIARRHOEA [None]
